FAERS Safety Report 10163895 (Version 1)
Quarter: 2014Q2

REPORT INFORMATION
  Report Type: Report from Study
  Country: RO (occurrence: RO)
  Receive Date: 20140510
  Receipt Date: 20140510
  Transmission Date: 20141212
  Serious: Yes (Other)
  Sender: FDA-Public Use
  Company Number: RO-ROCHE-1398021

PATIENT
  Sex: Female

DRUGS (5)
  1. NELFINAVIR [Suspect]
     Indication: HIV INFECTION
     Route: 065
  2. SAQUINAVIR [Suspect]
     Indication: HIV INFECTION
     Route: 065
  3. LAMIVUDINE [Suspect]
     Indication: HIV INFECTION
     Route: 065
  4. LAMIVUDINE/ZIDOVUDINE [Suspect]
     Indication: HIV INFECTION
     Route: 065
  5. RITONAVIR [Suspect]
     Indication: HIV INFECTION
     Route: 065

REACTIONS (5)
  - Hepatocellular injury [Unknown]
  - Maternal exposure during pregnancy [Unknown]
  - Drug intolerance [Unknown]
  - Vomiting [Unknown]
  - Anaemia [Unknown]
